FAERS Safety Report 7118502-6 (Version None)
Quarter: 2010Q4

REPORT INFORMATION
  Report Type: 
  Country: None (occurrence: None)
  Receive Date: 20101123
  Receipt Date: 20100129
  Transmission Date: 20110411
  Serious: No
  Sender: FDA-Public Use
  Company Number: US-MYLANLABS-2010S1001656

PATIENT
  Age: 39 Year
  Sex: Male
  Weight: 81.65 kg

DRUGS (3)
  1. CLONAZEPAM [Suspect]
     Indication: ANXIETY
     Route: 048
  2. CLONAZEPAM [Suspect]
     Indication: INSOMNIA
     Route: 048
  3. IBUPROFEN [Concomitant]

REACTIONS (4)
  - ANXIETY [None]
  - DRUG EFFECT DECREASED [None]
  - INSOMNIA [None]
  - INTENTIONAL DRUG MISUSE [None]
